FAERS Safety Report 16660702 (Version 2)
Quarter: 2019Q3

REPORT INFORMATION
  Report Type: Spontaneous
  Country: US (occurrence: US)
  Receive Date: 20190802
  Receipt Date: 20190828
  Transmission Date: 20191004
  Serious: Yes (Hospitalization)
  Sender: FDA-Public Use
  Company Number: US-VERTEX PHARMACEUTICALS-2019-007099

PATIENT
  Age: 55 Year
  Sex: Male

DRUGS (1)
  1. SYMDEKO [Suspect]
     Active Substance: IVACAFTOR\TEZACAFTOR
     Indication: CYSTIC FIBROSIS
     Dosage: REGULAR (100MG TEZACAFTOR/150MG IVACAFTOR; 150MG IVACAFTOR  TABLETS)
     Route: 048
     Dates: start: 20180406, end: 20190614

REACTIONS (4)
  - Increased bronchial secretion [Recovering/Resolving]
  - Productive cough [Recovering/Resolving]
  - Depressed mood [Recovering/Resolving]
  - Infective pulmonary exacerbation of cystic fibrosis [Recovering/Resolving]

NARRATIVE: CASE EVENT DATE: 201905
